FAERS Safety Report 9174626 (Version 1)
Quarter: 2013Q1

REPORT INFORMATION
  Report Type: Spontaneous
  Country: US (occurrence: None)
  Receive Date: 20130313
  Receipt Date: 20130313
  Transmission Date: 20140127
  Serious: Yes (Hospitalization)
  Sender: FDA-Public Use
  Company Number: UTC-029839

PATIENT
  Age: 4 Year
  Sex: Female
  Weight: 13.05 kg

DRUGS (1)
  1. REMODULIN (1 MILLIGRAM/MILLILITERS, INJECTION FOR INFUSION) (TREPOSTINIL SODICUM) [Suspect]
     Indication: PULMONARY ARTERIAL HYPERTENSION
     Dosage: (0.005 UG/KG, 1 IN 1
     Dates: start: 20130219, end: 201302

REACTIONS (1)
  - Oxygen saturation decreased [None]
